FAERS Safety Report 5250274-2 (Version None)
Quarter: 2007Q1

REPORT INFORMATION
  Report Type: 
  Country: None (occurrence: None)
  Receive Date: 20070228
  Receipt Date: 20060315
  Transmission Date: 20070707
  Serious: Yes (Other)
  Sender: FDA-Public Use
  Company Number: US-GLAXOSMITHKLINE-A0597679A

PATIENT
  Age: 51 Year
  Sex: Female

DRUGS (2)
  1. LAMICTAL [Suspect]
     Indication: EPILEPSY
     Route: 048
  2. NICOTINE [Concomitant]
     Route: 062
     Dates: start: 20060313

REACTIONS (2)
  - CONVULSION [None]
  - PARTIAL SEIZURES [None]
